FAERS Safety Report 24283810 (Version 1)
Quarter: 2024Q3

REPORT INFORMATION
  Report Type: Spontaneous
  Country: US (occurrence: US)
  Receive Date: 20240905
  Receipt Date: 20240905
  Transmission Date: 20241016
  Serious: Yes (Other)
  Sender: MACLEODS
  Company Number: US-MACLEODS PHARMA-MAC2024049049

PATIENT

DRUGS (2)
  1. OLMESARTAN [Suspect]
     Active Substance: OLMESARTAN
     Indication: Product used for unknown indication
     Route: 065
  2. XERMELO [Suspect]
     Active Substance: TELOTRISTAT ETHYL
     Indication: Carcinoid syndrome
     Dosage: TABLET BY MOUTH 3 TIMES DAILY
     Route: 048

REACTIONS (3)
  - Angioedema [Not Recovered/Not Resolved]
  - Anaemia [Unknown]
  - Oral disorder [Not Recovered/Not Resolved]
